FAERS Safety Report 15575242 (Version 1)
Quarter: 2018Q4

REPORT INFORMATION
  Report Type: Report from Study
  Country: GT (occurrence: GT)
  Receive Date: 20181101
  Receipt Date: 20181101
  Transmission Date: 20190205
  Serious: Yes (Hospitalization)
  Sender: FDA-Public Use
  Company Number: GT-SA-2018SA298454

PATIENT
  Age: 69 Year
  Sex: Male

DRUGS (1)
  1. HYDROCHLOROTHIAZIDE/IRBESARTAN [Suspect]
     Active Substance: HYDROCHLOROTHIAZIDE\IRBESARTAN
     Dosage: UNK, UNK, 300 MG OF IRBESARTAN + 25 MG OF HYDROCHLOROTHIAZIDE
     Route: 048
     Dates: start: 2010

REACTIONS (1)
  - Peritoneal disorder [Not Recovered/Not Resolved]

NARRATIVE: CASE EVENT DATE: 201809
